FAERS Safety Report 6700311-0 (Version None)
Quarter: 2010Q2

REPORT INFORMATION
  Report Type: 
  Country: None (occurrence: None)
  Receive Date: 20100428
  Receipt Date: 20100421
  Transmission Date: 20101027
  Serious: Yes (Death)
  Sender: FDA-Public Use
  Company Number: DE-ROCHE-412653

PATIENT
  Sex: Male
  Weight: 85 kg

DRUGS (7)
  1. BEVACIZUMAB [Suspect]
     Route: 042
     Dates: start: 20050518
  2. OXALIPLATIN [Suspect]
     Route: 042
     Dates: start: 20050518
  3. CAPECITABINE [Suspect]
     Route: 048
     Dates: start: 20050518
  4. DALTEPARIN-NATRIUM [Concomitant]
     Dates: start: 20050518, end: 20050729
  5. PANTOPRAZOL [Concomitant]
     Indication: PROPHYLAXIS
     Dates: start: 20050518, end: 20050729
  6. DEXAMETHASONE TAB [Concomitant]
     Dates: start: 20050518, end: 20050720
  7. GRANISETRON [Concomitant]
     Dates: start: 20050518, end: 20050720

REACTIONS (1)
  - SUDDEN DEATH [None]
